FAERS Safety Report 23302527 (Version 2)
Quarter: 2023Q4

REPORT INFORMATION
  Report Type: Spontaneous
  Country: DE (occurrence: DE)
  Receive Date: 20231215
  Receipt Date: 20231221
  Transmission Date: 20240110
  Serious: No
  Sender: FDA-Public Use
  Company Number: DE-SANOFI-01805600

PATIENT
  Age: 68 Year
  Sex: Male
  Weight: 133 kg

DRUGS (7)
  1. TRULICITY [Suspect]
     Active Substance: DULAGLUTIDE
     Indication: Type 2 diabetes mellitus
     Dosage: 1.5 ML, UNKNOWN
     Route: 065
  2. TRULICITY [Suspect]
     Active Substance: DULAGLUTIDE
     Dosage: 0.75 ML, UNKNOWN
     Route: 065
  3. INSULIN GLARGINE\LIXISENATIDE [Suspect]
     Active Substance: INSULIN GLARGINE\LIXISENATIDE
     Indication: Product used for unknown indication
     Dosage: 50 U, QD (EVERY EVENING)
     Route: 065
  4. INSULIN GLARGINE\LIXISENATIDE [Suspect]
     Active Substance: INSULIN GLARGINE\LIXISENATIDE
     Dosage: 30 U, QD (EVERY EVENING)
     Route: 065
  5. METFORMIN [Concomitant]
     Active Substance: METFORMIN HYDROCHLORIDE
     Indication: Type 2 diabetes mellitus
     Dosage: UNK, OTHER  (1-0-1)
  6. HUMALOG [Concomitant]
     Active Substance: INSULIN LISPRO
     Indication: Type 2 diabetes mellitus
     Dosage: UNK UNK, DAILY
  7. LEVEMIR [Concomitant]
     Active Substance: INSULIN DETEMIR
     Indication: Type 2 diabetes mellitus
     Dosage: 50 U, QD AT NIGHT,

REACTIONS (6)
  - Gait inability [Unknown]
  - Pruritus [Unknown]
  - Burning sensation [Unknown]
  - Acne [Recovered/Resolved]
  - Diarrhoea [Unknown]
  - Incorrect dose administered [Unknown]

NARRATIVE: CASE EVENT DATE: 20231001
